FAERS Safety Report 6962567-9 (Version None)
Quarter: 2010Q3

REPORT INFORMATION
  Report Type: 
  Country: None (occurrence: None)
  Receive Date: 20100831
  Receipt Date: 20100816
  Transmission Date: 20110219
  Serious: Yes (Other)
  Sender: FDA-Public Use
  Company Number: ALA_00664_2010

PATIENT
  Age: 14 Year
  Sex: Male

DRUGS (2)
  1. ROWASA [Suspect]
     Indication: COLITIS ULCERATIVE
     Dosage: (DF RECTAL)
     Route: 054
     Dates: start: 20100501
  2. APRISO [Concomitant]

REACTIONS (2)
  - HALLUCINATION [None]
  - OFF LABEL USE [None]
